FAERS Safety Report 12612088 (Version 1)
Quarter: 2016Q3

REPORT INFORMATION
  Report Type: Spontaneous
  Country: US (occurrence: US)
  Receive Date: 20160801
  Receipt Date: 20160801
  Transmission Date: 20161109
  Serious: Yes (Other)
  Sender: FDA-Public Use
  Company Number: US-MYLANLABS-2016M1030311

PATIENT

DRUGS (1)
  1. EPINEPHRINE. [Suspect]
     Active Substance: EPINEPHRINE
     Dosage: UNK, ONCE
     Dates: start: 2008, end: 2008

REACTIONS (4)
  - Accidental exposure to product [Unknown]
  - Finger amputation [Unknown]
  - Skeletal injury [Unknown]
  - Wrong technique in product usage process [Unknown]
